FAERS Safety Report 12561832 (Version 3)
Quarter: 2016Q4

REPORT INFORMATION
  Report Type: Spontaneous
  Country: US (occurrence: US)
  Receive Date: 20160715
  Receipt Date: 20161007
  Transmission Date: 20170207
  Serious: Yes (Other)
  Sender: FDA-Public Use
  Company Number: US-ELI_LILLY_AND_COMPANY-US201607002946

PATIENT
  Age: 57 Year
  Sex: Female
  Weight: 36.73 kg

DRUGS (14)
  1. DURAGESIC [Concomitant]
     Active Substance: FENTANYL
  2. MORPHINE [Concomitant]
     Active Substance: MORPHINE
  3. ZANAFLEX [Concomitant]
     Active Substance: TIZANIDINE HYDROCHLORIDE
  4. FORTEO [Suspect]
     Active Substance: TERIPARATIDE
     Dosage: 20 UG, QD
     Route: 058
     Dates: start: 20160531, end: 20160630
  5. POTASSIUM CHLORIDE. [Concomitant]
     Active Substance: POTASSIUM CHLORIDE
  6. FORTEO [Suspect]
     Active Substance: TERIPARATIDE
     Indication: OSTEOPOROSIS
     Dosage: 20 UG, QD
     Route: 058
     Dates: start: 20160401, end: 20160510
  7. XANAX [Concomitant]
     Active Substance: ALPRAZOLAM
  8. MS CONTIN [Concomitant]
     Active Substance: MORPHINE SULFATE
  9. WAL ZYR D [Concomitant]
     Active Substance: CETIRIZINE HYDROCHLORIDE\PSEUDOEPHEDRINE HYDROCHLORIDE
  10. VITAMIN D3 [Concomitant]
     Active Substance: CHOLECALCIFEROL
  11. FORTEO [Suspect]
     Active Substance: TERIPARATIDE
     Dosage: 20 UG, QD
     Route: 058
     Dates: start: 20160816
  12. CALCIUM +VIT D [Concomitant]
     Active Substance: CALCIUM\VITAMIN D
  13. LISINOPRIL. [Concomitant]
     Active Substance: LISINOPRIL
  14. LASIX [Concomitant]
     Active Substance: FUROSEMIDE

REACTIONS (4)
  - Loss of consciousness [Unknown]
  - Nausea [Unknown]
  - Inappropriate schedule of drug administration [Unknown]
  - Syncope [Recovered/Resolved]

NARRATIVE: CASE EVENT DATE: 20160523
